FAERS Safety Report 9264310 (Version 1)
Quarter: 2013Q2

REPORT INFORMATION
  Report Type: Spontaneous
  Country: US (occurrence: US)
  Receive Date: 20130430
  Receipt Date: 20130430
  Transmission Date: 20140414
  Serious: Yes (Hospitalization)
  Sender: FDA-Public Use
  Company Number: US-ELI_LILLY_AND_COMPANY-US201304007130

PATIENT
  Sex: Male

DRUGS (15)
  1. HUMALOG LISPRO [Suspect]
     Indication: TYPE 2 DIABETES MELLITUS
     Dosage: UNK, TID
  2. HUMALOG LISPRO [Suspect]
     Dosage: UNK, PRN
  3. HUMALOG LISPRO [Suspect]
  4. LANTUS [Concomitant]
     Dosage: UNK, BID
  5. PREDNISONE [Concomitant]
     Indication: PROPHYLAXIS AGAINST TRANSPLANT REJECTION
  6. NITROGLYCERIN [Concomitant]
     Dosage: UNK, PRN
  7. ACTOS [Concomitant]
     Indication: BLOOD CHOLESTEROL
  8. COLCRYS [Concomitant]
     Indication: GOUT
  9. BABY ASPIRIN [Concomitant]
  10. LASIX [Concomitant]
  11. METOPROLOL [Concomitant]
  12. PANTOPRAZOLE [Concomitant]
     Indication: ULCER
  13. GABAPENTIN [Concomitant]
  14. CIPROFLOXACIN [Concomitant]
  15. TACROLIMUS [Concomitant]
     Indication: PROPHYLAXIS AGAINST TRANSPLANT REJECTION

REACTIONS (4)
  - Angina pectoris [Unknown]
  - Dizziness [Unknown]
  - Dyspnoea [Unknown]
  - Dizziness [Unknown]
